FAERS Safety Report 17660619 (Version 3)
Quarter: 2020Q2

REPORT INFORMATION
  Report Type: Spontaneous
  Country: US (occurrence: US)
  Receive Date: 20200413
  Receipt Date: 20200428
  Transmission Date: 20200713
  Serious: Yes (Other)
  Sender: FDA-Public Use
  Company Number: US-PFIZER INC-2020150538

PATIENT
  Age: 25 Year
  Sex: Male

DRUGS (1)
  1. BENEFIX [Suspect]
     Active Substance: COAGULATION FACTOR IX RECOMBINANT HUMAN\ISOPROPYL ALCOHOL
     Indication: PROPHYLAXIS
     Dosage: UNK, 2X/WEEK (PROPHYLACTICALLY)

REACTIONS (3)
  - Contusion [Unknown]
  - Coma [Unknown]
  - Seizure [Unknown]
